FAERS Safety Report 16814020 (Version 1)
Quarter: 2019Q3

REPORT INFORMATION
  Report Type: Spontaneous
  Country: SE (occurrence: SE)
  Receive Date: 20190917
  Receipt Date: 20190917
  Transmission Date: 20191005
  Serious: Yes (Other)
  Sender: FDA-Public Use
  Company Number: SE-ROCHE-2407523

PATIENT

DRUGS (1)
  1. XOLAIR [Suspect]
     Active Substance: OMALIZUMAB
     Indication: URTICARIA CHRONIC
     Dosage: UNK
     Route: 065
     Dates: start: 20190705

REACTIONS (7)
  - Diarrhoea [Recovering/Resolving]
  - Urticarial vasculitis [Recovering/Resolving]
  - Joint swelling [Recovering/Resolving]
  - Pyrexia [Recovering/Resolving]
  - Angioedema [Recovering/Resolving]
  - Back pain [Not Recovered/Not Resolved]
  - Rash [Recovered/Resolved]
